FAERS Safety Report 14907018 (Version 2)
Quarter: 2018Q2

REPORT INFORMATION
  Report Type: Spontaneous
  Country: US (occurrence: US)
  Receive Date: 20180517
  Receipt Date: 20180605
  Transmission Date: 20180711
  Serious: No
  Sender: FDA-Public Use
  Company Number: US-HORIZON-VIM-0669-2018

PATIENT
  Age: 54 Year
  Sex: Female

DRUGS (2)
  1. VIMOVO [Suspect]
     Active Substance: ESOMEPRAZOLE MAGNESIUM\NAPROXEN
     Indication: ARTHRITIS
     Dosage: TWICE A DAY BEFORE MEALS
     Dates: start: 20180508, end: 20180509
  2. MOTRIN [Concomitant]
     Active Substance: IBUPROFEN

REACTIONS (3)
  - Headache [Unknown]
  - Throat tightness [Unknown]
  - Dizziness [Unknown]

NARRATIVE: CASE EVENT DATE: 20180509
